FAERS Safety Report 5042426-1 (Version None)
Quarter: 2006Q3

REPORT INFORMATION
  Report Type: 
  Country: None (occurrence: None)
  Receive Date: 20060705
  Receipt Date: 20050927
  Transmission Date: 20061208
  Serious: Yes (Hospitalization, Other)
  Sender: FDA-Public Use
  Company Number: PHBS2005CA14309

PATIENT
  Age: 49 Year
  Sex: Female
  Weight: 78.911 kg

DRUGS (8)
  1. CLOZARIL [Suspect]
     Dosage: UNK, UNK
     Route: 048
     Dates: start: 19921201
  2. CLOZARIL [Suspect]
     Dosage: 600 MG/D
     Route: 048
     Dates: start: 20000101
  3. CLOZARIL [Suspect]
     Dosage: 100 MG BID AND 200 MG QHS
     Route: 048
  4. VALPROIC ACID [Concomitant]
     Route: 065
  5. FRISIUM [Suspect]
     Dosage: 10 MG, QHS
     Route: 065
  6. DILANTIN [Concomitant]
     Dosage: 1 DF, QID
     Route: 048
  7. VALPROIC ACID [Concomitant]
     Dosage: 3500 MG/D
     Route: 065
  8. PROCYCLIDINE HYDROCHLORIDE 2MG TAB [Concomitant]
     Dosage: 5 MG, BID
     Route: 065

REACTIONS (8)
  - BALANCE DISORDER [None]
  - BITE [None]
  - BLOOD PRESSURE INCREASED [None]
  - CONVULSION [None]
  - COORDINATION ABNORMAL [None]
  - ECCHYMOSIS [None]
  - FALL [None]
  - SWELLING FACE [None]
